FAERS Safety Report 14109224 (Version 1)
Quarter: 2017Q4

REPORT INFORMATION
  Report Type: Spontaneous
  Country: GB (occurrence: GB)
  Receive Date: 20171019
  Receipt Date: 20171019
  Transmission Date: 20180321
  Serious: Yes (Hospitalization)
  Sender: FDA-Public Use
  Company Number: GB-TEVA-816145ACC

PATIENT
  Age: 86 Year

DRUGS (9)
  1. ADCAL-D3 [Concomitant]
     Active Substance: CALCIUM CARBONATE\CHOLECALCIFEROL
  2. ASPIRIN. [Concomitant]
     Active Substance: ASPIRIN
  3. PARACETAMOL [Concomitant]
     Active Substance: ACETAMINOPHEN
  4. SENNA [Concomitant]
     Active Substance: SENNA LEAF\SENNOSIDES\SENNOSIDES A AND B
  5. BENDROFLUMETHIAZIDE [Suspect]
     Active Substance: BENDROFLUMETHIAZIDE
     Route: 048
     Dates: end: 20170804
  6. CODEINE [Concomitant]
     Active Substance: CODEINE
  7. LOSARTAN. [Suspect]
     Active Substance: LOSARTAN
     Route: 048
     Dates: end: 20170804
  8. VISCOTEARS [Concomitant]
     Active Substance: CARBOMER
  9. HYPROMELLOSE [Concomitant]
     Active Substance: HYPROMELLOSES
     Route: 061

REACTIONS (3)
  - Confusional state [Unknown]
  - Asthenia [Unknown]
  - Hyponatraemia [Recovered/Resolved]

NARRATIVE: CASE EVENT DATE: 20170804
